FAERS Safety Report 16518777 (Version 2)
Quarter: 2019Q3

REPORT INFORMATION
  Report Type: Spontaneous
  Country: CA (occurrence: CA)
  Receive Date: 20190702
  Receipt Date: 20190809
  Transmission Date: 20191004
  Serious: Yes (Death, Congenital Anomaly, Other)
  Sender: FDA-Public Use
  Company Number: CA-PFIZER INC-2013235699

PATIENT

DRUGS (2)
  1. MISOPROSTOL. [Suspect]
     Active Substance: MISOPROSTOL
     Indication: ABORTION
     Dosage: 800 UG, UNK
     Route: 064
  2. METHOTREXATE SODIUM. [Suspect]
     Active Substance: METHOTREXATE SODIUM
     Indication: ABORTION
     Dosage: 50 MG/M2, UNK
     Route: 064

REACTIONS (11)
  - Micrognathia [Fatal]
  - Congenital anomaly [Fatal]
  - Congenital nose malformation [Fatal]
  - Low set ears [Fatal]
  - Congenital hand malformation [Fatal]
  - Foetal growth restriction [Fatal]
  - Hypertelorism of orbit [Fatal]
  - Microcephaly [Fatal]
  - Spine malformation [Fatal]
  - Clinodactyly [Fatal]
  - Umbilical cord abnormality [Fatal]
